FAERS Safety Report 19899962 (Version 4)
Quarter: 2021Q4

REPORT INFORMATION
  Report Type: Report from Study
  Country: IT (occurrence: IT)
  Receive Date: 20210929
  Receipt Date: 20211122
  Transmission Date: 20220303
  Serious: Yes (Hospitalization, Other)
  Sender: FDA-Public Use
  Company Number: IT-BAYER-2021A215987

PATIENT
  Age: 77 Year
  Sex: Male

DRUGS (15)
  1. COPANLISIB [Suspect]
     Active Substance: COPANLISIB
     Indication: Diffuse large B-cell lymphoma recurrent
     Dosage: 60 MG
     Route: 042
     Dates: start: 20210901, end: 20210908
  2. COPANLISIB [Suspect]
     Active Substance: COPANLISIB
     Indication: Diffuse large B-cell lymphoma recurrent
     Dosage: 45 MG, DAY 1-2 AND 8 OF CYCLE
     Route: 042
     Dates: start: 20210901
  3. RITUXIMAB [Suspect]
     Active Substance: RITUXIMAB
     Indication: Diffuse large B-cell lymphoma recurrent
     Dosage: 742.5 MG
     Route: 042
     Dates: start: 20210901, end: 20210901
  4. RITUXIMAB [Suspect]
     Active Substance: RITUXIMAB
     Indication: Diffuse large B-cell lymphoma recurrent
     Dosage: 742.5 MG
     Route: 042
     Dates: start: 20211026
  5. BENDAMUSTINE [Suspect]
     Active Substance: BENDAMUSTINE
     Indication: Diffuse large B-cell lymphoma recurrent
     Dosage: 138.6 MG
     Route: 042
     Dates: start: 20210901, end: 20210902
  6. BENDAMUSTINE [Suspect]
     Active Substance: BENDAMUSTINE
     Indication: Diffuse large B-cell lymphoma recurrent
     Dosage: 118.0 MG
     Route: 042
     Dates: start: 20211026
  7. ALLOPURINOL [Concomitant]
     Active Substance: ALLOPURINOL
     Dosage: 300 MG
     Dates: end: 20210929
  8. OMEPRAZOLE [Concomitant]
     Active Substance: OMEPRAZOLE
     Dosage: 20 MG
  9. LAMIVUDINE [Concomitant]
     Active Substance: LAMIVUDINE
     Dosage: 100 MG
  10. URSODIOL [Concomitant]
     Active Substance: URSODIOL
     Dosage: 300 MG
     Dates: end: 20210929
  11. SILODOSIN [Concomitant]
     Active Substance: SILODOSIN
     Dosage: 4 MG, BID
  12. FLECAINIDE [Concomitant]
     Active Substance: FLECAINIDE
     Dosage: 100 MG, BID
     Dates: start: 20210901
  13. FOLIN [FOLIC ACID] [Concomitant]
     Dosage: 5 MG
  14. ALPRAZOLAM [Concomitant]
     Active Substance: ALPRAZOLAM
     Dosage: 0.25 MG
  15. ISAVUCONAZOLE [Concomitant]
     Active Substance: ISAVUCONAZOLE
     Dosage: 100 MG, BID

REACTIONS (5)
  - Pyrexia [Recovered/Resolved]
  - Bronchopulmonary aspergillosis [Not Recovered/Not Resolved]
  - Rash [Recovered/Resolved]
  - Pseudomonas infection [Not Recovered/Not Resolved]
  - Pyrexia [Not Recovered/Not Resolved]

NARRATIVE: CASE EVENT DATE: 20210910
